FAERS Safety Report 10945629 (Version 4)
Quarter: 2015Q3

REPORT INFORMATION
  Report Type: Spontaneous
  Country: JP (occurrence: JP)
  Receive Date: 20150323
  Receipt Date: 20150915
  Transmission Date: 20151125
  Serious: Yes (Death, Life-Threatening, Other)
  Sender: FDA-Public Use
  Company Number: JP-PFIZER INC-2015101158

PATIENT
  Age: 54 Year
  Sex: Male
  Weight: 75 kg

DRUGS (26)
  1. DECADRON [Concomitant]
     Active Substance: DEXAMETHASONE
     Dosage: UNK
     Dates: start: 20150225, end: 20150226
  2. LASIX [Concomitant]
     Active Substance: FUROSEMIDE
  3. ELPLAT [Suspect]
     Active Substance: OXALIPLATIN
     Indication: PANCREATIC CARCINOMA
     Dosage: 85 MG/M2, 1X/DAY
     Route: 041
     Dates: start: 20150224, end: 20150224
  4. 5-FU [Suspect]
     Active Substance: FLUOROURACIL
     Indication: PANCREATIC CARCINOMA
     Dosage: 2400 MG/M2, ALTERNATE DAY (ONCE IN 2 DAYS)
     Route: 041
     Dates: start: 20150224, end: 20150224
  5. EMEND [Concomitant]
     Active Substance: APREPITANT
     Dosage: UNK
     Dates: start: 20150224, end: 20150225
  6. GRAN [Concomitant]
     Active Substance: FILGRASTIM
     Dosage: UNK
     Dates: start: 20150302, end: 20150309
  7. RECOMODULIN [Concomitant]
     Active Substance: THROMBOMODULIN ALFA
     Dosage: UNK
     Dates: start: 20150302, end: 20150311
  8. PRIMPERAN [Concomitant]
     Active Substance: METOCLOPRAMIDE HYDROCHLORIDE
  9. MAXIPIME [Concomitant]
     Active Substance: CEFEPIME HYDROCHLORIDE
  10. VANCOMYCIN [Concomitant]
     Active Substance: VANCOMYCIN
  11. DEXART [Concomitant]
     Active Substance: DEXAMETHASONE SODIUM PHOSPHATE
     Dosage: UNK
     Dates: start: 20150224, end: 20150224
  12. ATROPINE SULFATE HYDRATE [Concomitant]
     Active Substance: ATROPINE SULFATE
     Dosage: UNK
     Dates: start: 20150224, end: 20150224
  13. LOXOPROFEN [Concomitant]
     Active Substance: LOXOPROFEN
     Dosage: UNK
     Dates: start: 20150301
  14. ALBUMIN [Concomitant]
     Active Substance: ALBUMIN (HUMAN)
     Dosage: UNK
     Dates: start: 20150304, end: 20150311
  15. NOVOLIN R [Concomitant]
     Active Substance: INSULIN HUMAN
     Dosage: UNK
     Dates: start: 20150306, end: 20150311
  16. PREDOPA /00360702/ [Concomitant]
  17. CAMPTO [Suspect]
     Active Substance: IRINOTECAN
     Indication: PANCREATIC CARCINOMA
     Dosage: 150 MG/M2, 1X/DAY
     Route: 041
     Dates: start: 20150224, end: 20150224
  18. ZOMETA [Concomitant]
     Active Substance: ZOLEDRONIC ACID
     Dosage: UNK
     Dates: start: 20150203, end: 20150203
  19. LOPERAMIDE [Concomitant]
     Active Substance: LOPERAMIDE
  20. LEVOFOLINATE [Suspect]
     Active Substance: LEVOLEUCOVORIN CALCIUM
     Indication: PANCREATIC CARCINOMA
     Dosage: 200 MG/M2, 1X/DAY
     Route: 041
     Dates: start: 20150224, end: 20150224
  21. ALOXI [Concomitant]
     Active Substance: PALONOSETRON HYDROCHLORIDE
     Dosage: UNK
     Dates: start: 20150224, end: 20150224
  22. ATARAX-P [Concomitant]
     Active Substance: HYDROXYZINE HYDROCHLORIDE
     Dosage: UNK
     Dates: start: 20150204
  23. CHIECOOL [Concomitant]
  24. ZYPREXA [Concomitant]
     Active Substance: OLANZAPINE
     Dosage: UNK
     Dates: start: 20150226
  25. ROPION [Concomitant]
     Active Substance: FLURBIPROFEN AXETIL
     Dosage: UNK
     Dates: start: 20150302, end: 20150310
  26. CRAVIT [Concomitant]
     Active Substance: LEVOFLOXACIN

REACTIONS (14)
  - Rhinorrhoea [Recovered/Resolved]
  - Disseminated intravascular coagulation [Fatal]
  - Decreased appetite [Not Recovered/Not Resolved]
  - Hyperhidrosis [Recovered/Resolved]
  - Hiccups [Recovered/Resolved]
  - Nausea [Unknown]
  - Febrile neutropenia [Fatal]
  - White blood cell count decreased [Recovered/Resolved]
  - Platelet count decreased [Fatal]
  - Sepsis [Fatal]
  - Anaemia [Recovered/Resolved]
  - Diarrhoea [Recovered/Resolved]
  - Abdominal pain [Recovered/Resolved]
  - Hyperglycaemia [Not Recovered/Not Resolved]

NARRATIVE: CASE EVENT DATE: 20150224
